FAERS Safety Report 22337346 (Version 1)
Quarter: 2023Q2

REPORT INFORMATION
  Report Type: Spontaneous
  Country: US (occurrence: US)
  Receive Date: 20230518
  Receipt Date: 20230518
  Transmission Date: 20230722
  Serious: Yes (Other)
  Sender: FDA-Public Use
  Company Number: US-BRISTOL-MYERS SQUIBB COMPANY-2023-067540

PATIENT
  Age: 81 Year
  Sex: Male

DRUGS (1)
  1. REVLIMID [Suspect]
     Active Substance: LENALIDOMIDE
     Indication: Plasma cell myeloma
     Dates: end: 2020

REACTIONS (6)
  - Drug ineffective [Recovered/Resolved]
  - Rash papular [Not Recovered/Not Resolved]
  - Cataract [Unknown]
  - Tooth fracture [Unknown]
  - Dyspnoea [Unknown]
  - Arthralgia [Unknown]
